FAERS Safety Report 12861583 (Version 1)
Quarter: 2016Q4

REPORT INFORMATION
  Report Type: Spontaneous
  Country: IL (occurrence: IL)
  Receive Date: 20161019
  Receipt Date: 20161019
  Transmission Date: 20170207
  Serious: Yes (Other)
  Sender: FDA-Public Use
  Company Number: IL-PFIZER INC-2016329654

PATIENT
  Age: 72 Year
  Sex: Female

DRUGS (7)
  1. PALBOCICLIB [Suspect]
     Active Substance: PALBOCICLIB
     Indication: BREAST CANCER
     Dosage: UNK
     Dates: start: 201605, end: 201608
  2. LETROZOLE. [Concomitant]
     Active Substance: LETROZOLE
     Indication: METASTASES TO SMALL INTESTINE
     Dosage: UNK
  3. EXEMESTAN [Concomitant]
     Active Substance: EXEMESTANE
     Indication: METASTASES TO SMALL INTESTINE
     Dosage: UNK
  4. FULVESTRANT [Concomitant]
     Active Substance: FULVESTRANT
     Indication: METASTASES TO SMALL INTESTINE
     Dosage: UNK
  5. PALBOCICLIB [Suspect]
     Active Substance: PALBOCICLIB
     Dosage: 125 UNK, UNK
  6. TAMOXIFEN [Suspect]
     Active Substance: TAMOXIFEN
     Indication: BREAST CANCER
     Dosage: UNK
  7. EVEROLIMUS [Concomitant]
     Active Substance: EVEROLIMUS
     Indication: METASTASES TO SMALL INTESTINE
     Dosage: UNK

REACTIONS (2)
  - Renal failure [Unknown]
  - Blood creatine increased [Unknown]
